FAERS Safety Report 7573751-8 (Version None)
Quarter: 2011Q2

REPORT INFORMATION
  Report Type: 
  Country: None (occurrence: None)
  Receive Date: 20110525
  Receipt Date: 20110303
  Transmission Date: 20111010
  Serious: No
  Sender: FDA-Public Use
  Company Number: 324377

PATIENT
  Age: 58 Year
  Sex: Male

DRUGS (1)
  1. VICTOZA [Suspect]
     Indication: PRODUCT USED FOR UNKNOWN INDICATION
     Dosage: 1.2 MG, QD, SUBCUTANEOUS
     Route: 058

REACTIONS (1)
  - INJECTION SITE HAEMATOMA [None]
